FAERS Safety Report 22005437 (Version 2)
Quarter: 2023Q2

REPORT INFORMATION
  Report Type: Spontaneous
  Country: SI (occurrence: SI)
  Receive Date: 20230217
  Receipt Date: 20230401
  Transmission Date: 20230722
  Serious: Yes (Other)
  Sender: FDA-Public Use
  Company Number: SI-002147023-NVSC2023SI032071

PATIENT
  Sex: Female

DRUGS (2)
  1. AMITRIPTYLINE [Suspect]
     Active Substance: AMITRIPTYLINE
     Indication: Product used for unknown indication
     Dosage: UNK
     Route: 065
  2. AMITRIPTYLINE [Suspect]
     Active Substance: AMITRIPTYLINE
     Dosage: 10 MG
     Route: 065
     Dates: start: 20230111

REACTIONS (4)
  - Syncope [Unknown]
  - Vertigo [Unknown]
  - Drug ineffective [Unknown]
  - Product shape issue [Unknown]

NARRATIVE: CASE EVENT DATE: 20230206
